FAERS Safety Report 9669846 (Version 3)
Quarter: 2014Q1

REPORT INFORMATION
  Report Type: Spontaneous
  Country: US (occurrence: US)
  Receive Date: 20131105
  Receipt Date: 20140107
  Transmission Date: 20141002
  Serious: Yes (Other)
  Sender: FDA-Public Use
  Company Number: US-PFIZER INC-2013311750

PATIENT
  Age: 57 Year
  Sex: Female

DRUGS (9)
  1. PREMARIN [Suspect]
     Dosage: 0.5 G, THREE TIMES A WEEK
  2. MIRALAX [Concomitant]
     Dosage: UNK
  3. MILK OF MAGNESIA [Concomitant]
     Dosage: UNK
  4. VITAMIN C [Concomitant]
     Dosage: UNK
  5. ECHINACEA [Concomitant]
     Dosage: UNK
  6. LEXAPRO [Concomitant]
     Dosage: 20 MG, UNK
  7. ADIPEX [Concomitant]
     Dosage: 37.5 MG, DAILY
  8. ADVAIR DISKUS [Concomitant]
     Dosage: 2 PUFF DAILY
  9. KLONOPIN [Concomitant]
     Dosage: 2 MG, DAILY

REACTIONS (1)
  - Uterine disorder [Unknown]
